FAERS Safety Report 23666915 (Version 1)
Quarter: 2024Q1

REPORT INFORMATION
  Report Type: Spontaneous
  Country: US (occurrence: US)
  Receive Date: 20240325
  Receipt Date: 20240325
  Transmission Date: 20240410
  Serious: No
  Sender: FDA-Public Use
  Company Number: US-GSKCCFUS-Case-01963126_AE-109135

PATIENT
  Age: 50 Year
  Sex: Female

DRUGS (1)
  1. INCRUSE ELLIPTA [Suspect]
     Active Substance: UMECLIDINIUM BROMIDE
     Indication: Product used for unknown indication
     Dosage: UNK

REACTIONS (6)
  - Candida infection [Unknown]
  - Nausea [Unknown]
  - Dyspnoea [Unknown]
  - Stomatitis [Unknown]
  - Condition aggravated [Unknown]
  - Drug ineffective [Unknown]
